FAERS Safety Report 26160443 (Version 1)
Quarter: 2025Q4

REPORT INFORMATION
  Report Type: Spontaneous
  Country: US (occurrence: None)
  Receive Date: 20251216
  Receipt Date: 20251216
  Transmission Date: 20260118
  Serious: Yes (Other)
  Sender: ENDO
  Company Number: US-ENDO USA, INC.-2025-001763

PATIENT
  Sex: Male

DRUGS (5)
  1. XIAFLEX [Suspect]
     Active Substance: COLLAGENASE CLOSTRIDIUM HISTOLYTICUM
     Indication: Peyronie^s disease
     Dosage: 0.58 MILLIGRAM, UNKNOWN (1X ON 2 DAYS, 1-3 DAYS APART EVERY 6 WEEKS) (CYCLE 2, INJECTION 2)
  2. XIAFLEX [Suspect]
     Active Substance: COLLAGENASE CLOSTRIDIUM HISTOLYTICUM
     Dosage: 0.58 MILLIGRAM, UNKNOWN (1X ON 2 DAYS, 1-3 DAYS APART EVERY 6 WEEKS) (CYCLE 2, INJECTION 1)
  3. XIAFLEX [Suspect]
     Active Substance: COLLAGENASE CLOSTRIDIUM HISTOLYTICUM
     Dosage: 0.58 MILLIGRAM, UNKNOWN (1X ON 2 DAYS, 1-3 DAYS APART EVERY 6 WEEKS) (CYCLE 3, INJECTION 1)
  4. XIAFLEX [Suspect]
     Active Substance: COLLAGENASE CLOSTRIDIUM HISTOLYTICUM
     Dosage: 0.58 MILLIGRAM, UNKNOWN (1X ON 2 DAYS, 1-3 DAYS APART EVERY 6 WEEKS) (CYCLE 1, INJECTION 1)
  5. XIAFLEX [Suspect]
     Active Substance: COLLAGENASE CLOSTRIDIUM HISTOLYTICUM
     Dosage: 0.58 MILLIGRAM, UNKNOWN (1X ON 2 DAYS, 1-3 DAYS APART EVERY 6 WEEKS) (CYCLE 1, INJECTION 2)

REACTIONS (4)
  - Penile pain [Unknown]
  - Penile contusion [Unknown]
  - Penile blister [Unknown]
  - Penile swelling [Recovered/Resolved]

NARRATIVE: CASE EVENT DATE: 20250101
